FAERS Safety Report 15020934 (Version 5)
Quarter: 2019Q2

REPORT INFORMATION
  Report Type: Spontaneous
  Country: US (occurrence: US)
  Receive Date: 20180618
  Receipt Date: 20190516
  Transmission Date: 20190711
  Serious: Yes (Hospitalization, Other)
  Sender: FDA-Public Use
  Company Number: US-INCYTE CORPORATION-2018IN005831

PATIENT

DRUGS (6)
  1. JAKAFI [Suspect]
     Active Substance: RUXOLITINIB
     Dosage: 50 MG, BID
     Route: 048
     Dates: start: 20180524
  2. JAKAFI [Suspect]
     Active Substance: RUXOLITINIB
     Dosage: 50 MG, BID
     Route: 048
     Dates: start: 20180516
  3. JAKAFI [Suspect]
     Active Substance: RUXOLITINIB
     Dosage: 50 MG BID FOR 14 DAYS PER MONTH, REPEAT MONTHLY
     Route: 048
     Dates: start: 20180524
  4. JAKAFI [Suspect]
     Active Substance: RUXOLITINIB
     Dosage: 50 MG, BID
     Route: 048
     Dates: start: 20180524
  5. JAKAFI [Suspect]
     Active Substance: RUXOLITINIB
     Dosage: 50 MG BID FOR 14 DAYS PER MONTH, REPEAT MONTHLY
     Route: 048
     Dates: start: 20180524
  6. JAKAFI [Suspect]
     Active Substance: RUXOLITINIB
     Indication: ACUTE LYMPHOCYTIC LEUKAEMIA
     Dosage: 2X25MG TABLETS, BID
     Route: 048
     Dates: start: 20180522

REACTIONS (11)
  - Constipation [Not Recovered/Not Resolved]
  - Stomatitis [Unknown]
  - Pneumonia [Not Recovered/Not Resolved]
  - Weight abnormal [Not Recovered/Not Resolved]
  - Headache [Not Recovered/Not Resolved]
  - Abdominal discomfort [Unknown]
  - Fatigue [Unknown]
  - Off label use [Unknown]
  - Nausea [Unknown]
  - Product administered to patient of inappropriate age [Unknown]
  - Product dose omission [Unknown]

NARRATIVE: CASE EVENT DATE: 201904
